FAERS Safety Report 4866668-0 (Version None)
Quarter: 2005Q4

REPORT INFORMATION
  Report Type: 
  Country: None (occurrence: None)
  Receive Date: 20051221
  Receipt Date: 20051207
  Transmission Date: 20060501
  Serious: Yes (Life-Threatening)
  Sender: FDA-Public Use
  Company Number: CN-2005-025977

PATIENT
  Age: 47 Year
  Sex: Female

DRUGS (5)
  1. ULTRAVIST 370 [Suspect]
     Indication: ANGIOGRAM
     Dosage: 80 ML, 1 DOSE, INTRAVENOUS
     Route: 042
     Dates: start: 20051201, end: 20051201
  2. ASPIRIN [Concomitant]
  3. DILTIAZEM HCL [Concomitant]
  4. METOPROLOL [Concomitant]
  5. DEXAMETHASONE TAB [Concomitant]

REACTIONS (3)
  - ANAPHYLACTIC SHOCK [None]
  - EYELID OEDEMA [None]
  - FACE OEDEMA [None]
